FAERS Safety Report 6531666-8 (Version None)
Quarter: 2010Q1

REPORT INFORMATION
  Report Type: 
  Country: None (occurrence: None)
  Receive Date: 20100108
  Receipt Date: 20091228
  Transmission Date: 20100710
  Serious: Yes (Death, Other)
  Sender: FDA-Public Use
  Company Number: JP-PFIZER INC-2009314841

PATIENT
  Age: 73 Year
  Sex: Male
  Weight: 54 kg

DRUGS (5)
  1. CAMPTOSAR [Suspect]
     Indication: COLORECTAL CANCER
     Dosage: 220 MG (140.1 MG/M2)
     Route: 041
     Dates: start: 20090825, end: 20090929
  2. CALCIUM LEVOFOLINATE [Concomitant]
     Indication: COLORECTAL CANCER
     Dosage: 300 MG (191.1 MG/M2)
     Route: 041
     Dates: start: 20090825, end: 20090929
  3. FLUOROURACIL [Concomitant]
     Indication: COLORECTAL CANCER
     Dosage: 600 MG (382.2 MG/M2)
     Route: 040
     Dates: start: 20090825, end: 20090929
  4. FLUOROURACIL [Concomitant]
     Dosage: 3600 MG (2293 MG/M2)
     Route: 041
     Dates: start: 20090825, end: 20090929
  5. AVASTIN [Concomitant]
     Indication: COLORECTAL CANCER
     Dosage: 500 MG
     Route: 041
     Dates: start: 20090825, end: 20090929

REACTIONS (3)
  - LEUKOPENIA [None]
  - MELAENA [None]
  - NEUTROPENIA [None]
